FAERS Safety Report 17773335 (Version 3)
Quarter: 2025Q2

REPORT INFORMATION
  Report Type: Spontaneous
  Country: RO (occurrence: RO)
  Receive Date: 20200513
  Receipt Date: 20250425
  Transmission Date: 20250717
  Serious: Yes (Other)
  Sender: AUROBINDO
  Company Number: RO-ASPEN-GLO2019RO011905

PATIENT
  Age: 39 Year
  Sex: Female

DRUGS (4)
  1. MELPHALAN [Suspect]
     Active Substance: MELPHALAN
     Indication: Bone marrow conditioning regimen
     Route: 065
  2. FLUDARABINE [Suspect]
     Active Substance: FLUDARABINE PHOSPHATE
     Indication: Bone marrow conditioning regimen
     Route: 065
  3. METHOTREXATE [Suspect]
     Active Substance: METHOTREXATE
     Indication: Prophylaxis against graft versus host disease
     Route: 065
  4. TACROLIMUS [Suspect]
     Active Substance: TACROLIMUS
     Indication: Prophylaxis against graft versus host disease
     Route: 065

REACTIONS (6)
  - Stomatitis [Unknown]
  - Febrile neutropenia [Unknown]
  - Cytomegalovirus infection reactivation [Recovered/Resolved]
  - Polyomavirus viraemia [Recovered/Resolved]
  - Infection reactivation [Recovered/Resolved]
  - BK virus infection [Recovered/Resolved]

NARRATIVE: CASE EVENT DATE: 20180101
